FAERS Safety Report 25026154 (Version 1)
Quarter: 2025Q1

REPORT INFORMATION
  Report Type: Spontaneous
  Country: US (occurrence: US)
  Receive Date: 20250301
  Receipt Date: 20250301
  Transmission Date: 20250408
  Serious: No
  Sender: ABBVIE
  Company Number: US-ABBVIE-6150467

PATIENT
  Age: 60 Year
  Sex: Female
  Weight: 133 kg

DRUGS (3)
  1. HUMIRA [Suspect]
     Active Substance: ADALIMUMAB
     Indication: Rheumatoid arthritis
     Dosage: FIRST ADMIN DATE : 2024?FORM STRENGTH 40 MILLIGRAM
     Route: 058
  2. HUMIRA [Suspect]
     Active Substance: ADALIMUMAB
     Dosage: LAST ADMIN DATE : 2024?FORM STRENGTH 40 MILLIGRAM
     Route: 058
     Dates: start: 2024
  3. ARAVA [Concomitant]
     Active Substance: LEFLUNOMIDE
     Indication: Rheumatoid arthritis

REACTIONS (3)
  - Poor quality product administered [Not Recovered/Not Resolved]
  - Pain in extremity [Recovered/Resolved]
  - Arthralgia [Recovered/Resolved]

NARRATIVE: CASE EVENT DATE: 20240101
